FAERS Safety Report 4890745-1 (Version None)
Quarter: 2006Q1

REPORT INFORMATION
  Report Type: 
  Country: None (occurrence: None)
  Receive Date: 20060125
  Receipt Date: 20050913
  Transmission Date: 20060701
  Serious: No
  Sender: FDA-Public Use
  Company Number: US-BRISTOL-MYERS SQUIBB COMPANY-13109178

PATIENT
  Sex: Female

DRUGS (4)
  1. STADOL [Suspect]
     Indication: HEADACHE
     Route: 055
  2. ALBUTEROL SULFATE AUTOHALER [Concomitant]
     Route: 055
  3. ADVAIR DISKUS 100/50 [Concomitant]
     Route: 055
  4. WELLBUTRIN [Concomitant]

REACTIONS (1)
  - ASTHMA [None]
